FAERS Safety Report 15570233 (Version 1)
Quarter: 2018Q4

REPORT INFORMATION
  Report Type: Report from Study
  Country: CA (occurrence: CA)
  Receive Date: 20181031
  Receipt Date: 20181031
  Transmission Date: 20190205
  Serious: Yes (Death, Other)
  Sender: FDA-Public Use
  Company Number: CA-PFIZER INC-2008050906

PATIENT
  Age: 42 Year
  Sex: Male

DRUGS (9)
  1. METHAMPHETAMINE [Suspect]
     Active Substance: METHAMPHETAMINE
     Route: 065
  2. BROMAZEPAM [Suspect]
     Active Substance: BROMAZEPAM
     Route: 048
  3. SALICYLATE SODIUM [Suspect]
     Active Substance: SODIUM SALICYLATE
     Route: 048
  4. CODEINE [Suspect]
     Active Substance: CODEINE
     Route: 065
  5. DIAZEPAM. [Suspect]
     Active Substance: DIAZEPAM
     Route: 048
  6. ACETAMINOPHEN. [Suspect]
     Active Substance: ACETAMINOPHEN
     Route: 048
  7. CITALOPRAM [Suspect]
     Active Substance: CITALOPRAM HYDROBROMIDE
     Route: 048
  8. BUPROPION. [Suspect]
     Active Substance: BUPROPION
     Route: 048
  9. MORPHINE SULFATE. [Suspect]
     Active Substance: MORPHINE SULFATE
     Route: 065

REACTIONS (2)
  - Toxicity to various agents [Fatal]
  - Substance abuse [Fatal]
